FAERS Safety Report 7703058-7 (Version None)
Quarter: 2011Q3

REPORT INFORMATION
  Report Type: 
  Country: None (occurrence: None)
  Receive Date: 20110817
  Receipt Date: 20110810
  Transmission Date: 20111222
  Serious: Yes (Hospitalization, Other)
  Sender: FDA-Public Use
  Company Number: ACO_26135_2011

PATIENT
  Age: 61 Year
  Sex: Female

DRUGS (11)
  1. AMLODIPINE [Concomitant]
  2. TOPROL-XL [Concomitant]
  3. RECLAST [Concomitant]
  4. BACTRIM [Concomitant]
  5. ARIMIDEX [Concomitant]
  6. AVONEX [Concomitant]
  7. ASPIRIN [Concomitant]
  8. CALCIUM CARBONATE [Concomitant]
  9. AMPYRA [Suspect]
     Indication: GAIT DISTURBANCE
     Dates: start: 20100101
  10. AMANTADINE HCL [Concomitant]
  11. VITAMIN D NOS (VITAMIN D NOS) [Concomitant]

REACTIONS (10)
  - CONTUSION [None]
  - DIZZINESS [None]
  - THERAPEUTIC RESPONSE UNEXPECTED [None]
  - PETIT MAL EPILEPSY [None]
  - BLOOD GLUCOSE INCREASED [None]
  - GRAND MAL CONVULSION [None]
  - FEELING HOT [None]
  - DEHYDRATION [None]
  - URINARY TRACT INFECTION [None]
  - GLYCOSYLATED HAEMOGLOBIN INCREASED [None]
